FAERS Safety Report 17410328 (Version 1)
Quarter: 2020Q1

REPORT INFORMATION
  Report Type: Spontaneous
  Country: JP (occurrence: JP)
  Receive Date: 20200212
  Receipt Date: 20200212
  Transmission Date: 20200409
  Serious: Yes (Other)
  Sender: FDA-Public Use
  Company Number: JP-JNJFOC-20200204330

PATIENT
  Age: 83 Year
  Sex: Male
  Weight: 73 kg

DRUGS (4)
  1. PREDNISOLONE. [Concomitant]
     Active Substance: PREDNISOLONE
     Dosage: AFTER BREAKFAST
     Route: 048
     Dates: start: 20191115, end: 20200107
  2. ZYTIGA [Suspect]
     Active Substance: ABIRATERONE ACETATE
     Indication: PROSTATE CANCER
     Route: 048
     Dates: start: 20190426, end: 20190621
  3. PREDNISOLONE. [Concomitant]
     Active Substance: PREDNISOLONE
     Dosage: AFTER BREAKFAST
     Route: 048
     Dates: start: 20190426, end: 20191114
  4. LANSOPRAZOLE. [Concomitant]
     Active Substance: LANSOPRAZOLE
     Dosage: AFTER BREAKFAST
     Route: 048
     Dates: start: 20190426

REACTIONS (5)
  - Liver disorder [Recovered/Resolved]
  - Hydronephrosis [Unknown]
  - Prostate cancer recurrent [Unknown]
  - Urinary retention [Unknown]
  - Tissue infiltration [Unknown]

NARRATIVE: CASE EVENT DATE: 20190621
